FAERS Safety Report 18657763 (Version 1)
Quarter: 2020Q4

REPORT INFORMATION
  Report Type: Spontaneous
  Country: US (occurrence: US)
  Receive Date: 20201223
  Receipt Date: 20201223
  Transmission Date: 20210114
  Serious: No
  Sender: FDA-Public Use
  Company Number: US-TEVA-2020-US-1860503

PATIENT
  Age: 78 Year
  Sex: Female

DRUGS (2)
  1. ALBUTEROL SULFATE HFA [Suspect]
     Active Substance: ALBUTEROL SULFATE
     Indication: DYSPNOEA
     Dosage: 2 PUFFS EVERY 4 HOURS OR EVERY 2 HOURS IF NEEDED
     Route: 055
     Dates: start: 202009
  2. ADVAIR HFA [Concomitant]
     Active Substance: FLUTICASONE PROPIONATE\SALMETEROL XINAFOATE

REACTIONS (8)
  - Nocturia [Unknown]
  - Oral pain [Unknown]
  - Middle insomnia [Unknown]
  - Dyspnoea [Unknown]
  - Breath sounds abnormal [Unknown]
  - Ear pain [Unknown]
  - Rhinalgia [Unknown]
  - Complication associated with device [Unknown]

NARRATIVE: CASE EVENT DATE: 2020
